FAERS Safety Report 19710794 (Version 1)
Quarter: 2021Q3

REPORT INFORMATION
  Report Type: Other
  Country: US (occurrence: US)
  Receive Date: 20210817
  Receipt Date: 20210817
  Transmission Date: 20211014
  Serious: Yes (Other)
  Sender: FDA-Public Use
  Company Number: US-APOTEX-2021AP035793

PATIENT
  Age: 59 Year
  Sex: Male

DRUGS (35)
  1. OMEPRAZOLE. [Interacting]
     Active Substance: OMEPRAZOLE
     Indication: PEPTIC ULCER
     Dosage: UNK
     Route: 065
  2. LITHIUM CARBONATE. [Interacting]
     Active Substance: LITHIUM CARBONATE
     Indication: NEUTROPENIA
     Dosage: UNK
     Route: 065
  3. CLOZAPINE. [Interacting]
     Active Substance: CLOZAPINE
     Dosage: 25 MILLIGRAM
     Route: 065
     Dates: start: 20150427
  4. HALOPERIDOL. [Interacting]
     Active Substance: HALOPERIDOL
     Indication: PSYCHOTIC SYMPTOM
     Dosage: UNK
     Route: 065
  5. PAROXETINE. [Suspect]
     Active Substance: PAROXETINE
     Indication: DEPRESSION
     Dosage: UNK
     Route: 065
  6. CLOZAPINE. [Interacting]
     Active Substance: CLOZAPINE
     Dosage: 25 MILLIGRAM, Q.H.S.
     Route: 065
  7. QUETIAPINE. [Interacting]
     Active Substance: QUETIAPINE
     Indication: SCHIZOPHRENIA
  8. MINOCYCLINE [Interacting]
     Active Substance: MINOCYCLINE HYDROCHLORIDE
     Indication: PRODUCT USED FOR UNKNOWN INDICATION
     Dosage: UNK
     Route: 065
  9. LORAZEPAM. [Concomitant]
     Active Substance: LORAZEPAM
     Indication: ANXIETY
     Dosage: 0.5 MILLIGRAM, QID
     Route: 048
  10. BENZTROPINE [BENZATROPINE] [Concomitant]
     Active Substance: BENZTROPINE
     Indication: PRODUCT USED FOR UNKNOWN INDICATION
     Dosage: 0.5 MILLIGRAM, QD
     Route: 065
  11. MIRTAZAPINE. [Interacting]
     Active Substance: MIRTAZAPINE
     Indication: DEPRESSIVE SYMPTOM
     Dosage: UNK
     Route: 065
  12. HYDROXYZINE [Interacting]
     Active Substance: HYDROXYZINE HYDROCHLORIDE
     Indication: PRODUCT USED FOR UNKNOWN INDICATION
     Dosage: 25 MILLIGRAM, BID
     Route: 065
  13. PANTOPRAZOLE [Concomitant]
     Active Substance: PANTOPRAZOLE
     Indication: PEPTIC ULCER
     Dosage: UNK
     Route: 065
  14. TRAZODONE [Interacting]
     Active Substance: TRAZODONE HYDROCHLORIDE
     Indication: DEPRESSION
     Dosage: UNK
     Route: 065
  15. RISPERIDONE. [Interacting]
     Active Substance: RISPERIDONE
     Indication: SCHIZOPHRENIA
     Dosage: UNK
     Route: 065
  16. DIVALPROEX [Interacting]
     Active Substance: DIVALPROEX SODIUM
     Indication: SEIZURE PROPHYLAXIS
  17. OLANZAPINE. [Interacting]
     Active Substance: OLANZAPINE
     Dosage: 40 MILLIGRAM
     Route: 065
  18. LURASIDONE [Interacting]
     Active Substance: LURASIDONE
     Indication: SCHIZOPHRENIA
     Dosage: UNK
     Route: 065
  19. DIVALPROEX [Interacting]
     Active Substance: DIVALPROEX SODIUM
     Indication: AFFECTIVE DISORDER
     Dosage: UNK
     Route: 065
  20. TRIFLUOPERAZINE [Interacting]
     Active Substance: TRIFLUOPERAZINE HYDROCHLORIDE
     Indication: SCHIZOPHRENIA
     Dosage: UNK
     Route: 065
  21. CLOZAPINE. [Interacting]
     Active Substance: CLOZAPINE
     Dosage: 100 MILLIGRAM, BID
     Route: 065
     Dates: start: 20150515
  22. FLUPHENAZINE [Interacting]
     Active Substance: FLUPHENAZINE
     Indication: SCHIZOPHRENIA
     Dosage: UNK
     Route: 065
  23. PHENELZINE [Interacting]
     Active Substance: PHENELZINE
     Indication: DEPRESSION
     Dosage: UNK
     Route: 065
  24. LITHIUM CARBONATE. [Interacting]
     Active Substance: LITHIUM CARBONATE
     Dosage: 300 MILLIGRAM
     Route: 065
  25. CITALOPRAM [Interacting]
     Active Substance: CITALOPRAM HYDROBROMIDE
     Indication: DEPRESSION
     Dosage: UNK
     Route: 065
  26. NEFAZODONE [Interacting]
     Active Substance: NEFAZODONE
     Indication: DEPRESSION
     Dosage: UNK
     Route: 065
  27. CARBAMAZEPINE. [Interacting]
     Active Substance: CARBAMAZEPINE
     Indication: SCHIZOPHRENIA
     Dosage: UNK
     Route: 065
  28. OLANZAPINE. [Interacting]
     Active Substance: OLANZAPINE
     Indication: PSYCHOTIC SYMPTOM
     Dosage: 15 MG AT BEDTIME AND 2.5 MG TWICE A DAY (BID) AS NEEDED
     Route: 065
  29. CLONAZEPAM. [Interacting]
     Active Substance: CLONAZEPAM
     Indication: ANXIETY
     Dosage: UNK
     Route: 065
  30. VALPROIC ACID. [Interacting]
     Active Substance: VALPROIC ACID
     Indication: PRODUCT USED FOR UNKNOWN INDICATION
     Dosage: UNK
     Route: 065
  31. PIMAVANSERIN [Concomitant]
     Active Substance: PIMAVANSERIN
     Indication: PSYCHOTIC SYMPTOM
     Dosage: 34 MILLIGRAM
     Route: 065
  32. TRAZODONE [Interacting]
     Active Substance: TRAZODONE HYDROCHLORIDE
     Dosage: 100 MILLIGRAM, Q.H.S.
     Route: 065
  33. ARIPIPRAZOLE. [Interacting]
     Active Substance: ARIPIPRAZOLE
     Indication: SCHIZOPHRENIA
     Dosage: 60 MILLIGRAM
     Route: 065
  34. CLOZAPINE. [Interacting]
     Active Substance: CLOZAPINE
     Indication: SCHIZOPHRENIA
     Dosage: 250 MILLIGRAM, BID
     Route: 065
  35. QUETIAPINE. [Interacting]
     Active Substance: QUETIAPINE
     Indication: DEPRESSION
     Dosage: UNK
     Route: 065

REACTIONS (4)
  - Drug ineffective [Unknown]
  - Drug interaction [Unknown]
  - Neutrophil count decreased [Unknown]
  - Neutropenia [Unknown]
